FAERS Safety Report 6024612-7 (Version None)
Quarter: 2008Q4

REPORT INFORMATION
  Report Type: 
  Country: None (occurrence: None)
  Receive Date: 20081231
  Receipt Date: 20080422
  Transmission Date: 20090506
  Serious: No
  Sender: FDA-Public Use
  Company Number: US-BAYER-200811915BCC

PATIENT
  Age: 74 Year
  Sex: Male
  Weight: 93 kg

DRUGS (7)
  1. ALEVE (CAPLET) [Suspect]
     Indication: BACK PAIN
     Dosage: TOTAL DAILY DOSE: 440 MG  UNIT DOSE: 220 MG
     Route: 048
  2. ASPIRIN [Suspect]
     Indication: ISCHAEMIC HEART DISEASE PROPHYLAXIS
     Route: 048
  3. CIPROFLOXACIN [Suspect]
     Indication: CYSTITIS
     Dosage: TOTAL DAILY DOSE: 2 DF
     Route: 048
     Dates: start: 20080416
  4. DIABETES PILLS [Concomitant]
  5. BLOOD PRESSURE PILLS [Concomitant]
  6. FISH OIL [Concomitant]
  7. VITAMIN E [Concomitant]

REACTIONS (2)
  - CYSTITIS [None]
  - FAECES DISCOLOURED [None]
